FAERS Safety Report 7031005-2 (Version None)
Quarter: 2010Q4

REPORT INFORMATION
  Report Type: 
  Country: None (occurrence: None)
  Receive Date: 20101006
  Receipt Date: 20100706
  Transmission Date: 20110411
  Serious: No
  Sender: FDA-Public Use
  Company Number: US-BRISTOL-MYERS SQUIBB COMPANY-15179757

PATIENT
  Sex: Female

DRUGS (1)
  1. KENALOG-40 [Suspect]
     Dates: start: 20100512

REACTIONS (2)
  - INJECTION SITE ATROPHY [None]
  - MENORRHAGIA [None]
